FAERS Safety Report 5918808-X (Version None)
Quarter: 2008Q3

REPORT INFORMATION
  Report Type: 
  Country: None (occurrence: None)
  Receive Date: 20080909
  Receipt Date: 20070911
  Transmission Date: 20090109
  Serious: Yes (Hospitalization)
  Sender: FDA-Public Use
  Company Number: 163-20785-07080778

PATIENT
  Age: 80 Year
  Sex: Male

DRUGS (4)
  1. THALOMID [Suspect]
     Indication: MULTIPLE MYELOMA
     Dosage: 50 MG, 1 IN 1 D, ORAL
     Route: 048
     Dates: start: 20070807, end: 20070814
  2. ATENOLOL [Concomitant]
  3. PRAVASTATIN [Concomitant]
  4. ASPIRIN [Concomitant]

REACTIONS (8)
  - ASTHENIA [None]
  - BLOOD ALBUMIN DECREASED [None]
  - CALCIUM IONISED [None]
  - CALCIUM IONISED INCREASED [None]
  - EPISTAXIS [None]
  - FATIGUE [None]
  - MALIGNANT NEOPLASM PROGRESSION [None]
  - MULTIPLE MYELOMA [None]
